FAERS Safety Report 5500067-3 (Version None)
Quarter: 2007Q4

REPORT INFORMATION
  Report Type: 
  Country: None (occurrence: None)
  Receive Date: 20071024
  Receipt Date: 20071017
  Transmission Date: 20080405
  Serious: Yes (Death, Other)
  Sender: FDA-Public Use
  Company Number: 2007332281

PATIENT
  Sex: Female

DRUGS (1)
  1. NICOTINE [Suspect]
     Indication: SMOKING CESSATION THERAPY
     Dosage: ^HIGH STRENGTH PATCH^, TRANSDERMAL
     Route: 062

REACTIONS (1)
  - MYOCARDIAL INFARCTION [None]
